FAERS Safety Report 6426389-X (Version None)
Quarter: 2009Q4

REPORT INFORMATION
  Report Type: 
  Country: None (occurrence: None)
  Receive Date: 20091104
  Receipt Date: 20091027
  Transmission Date: 20100525
  Serious: Yes (Death)
  Sender: FDA-Public Use
  Company Number: US-JNJFOC-20091100738

PATIENT
  Age: 34 Year
  Sex: Male

DRUGS (1)
  1. TOPAMAX [Suspect]
     Indication: PAIN
     Route: 065

REACTIONS (1)
  - COMPLETED SUICIDE [None]
